FAERS Safety Report 5507424-X (Version None)
Quarter: 2007Q4

REPORT INFORMATION
  Report Type: 
  Country: None (occurrence: None)
  Receive Date: 20071106
  Receipt Date: 20071102
  Transmission Date: 20080405
  Serious: Yes (Hospitalization)
  Sender: FDA-Public Use
  Company Number: US-BRISTOL-MYERS SQUIBB COMPANY-13968177

PATIENT
  Age: 74 Year
  Sex: Female
  Weight: 70 kg

DRUGS (8)
  1. COUMADIN [Suspect]
     Indication: THROMBOSIS
     Dosage: DOSE INCREASED TO 5MG , 1.5 TABLETS DAILY
     Route: 048
     Dates: start: 20071001
  2. WARFARIN SODIUM [Suspect]
     Indication: THROMBOSIS
     Dates: start: 20071001
  3. ZESTRIL [Concomitant]
  4. ZOCOR [Concomitant]
  5. DUONEB [Concomitant]
  6. CHANTIX [Concomitant]
  7. ADVAIR DISKUS 100/50 [Concomitant]
  8. ULTRAM [Concomitant]

REACTIONS (1)
  - ANTICOAGULATION DRUG LEVEL [None]
